FAERS Safety Report 13800955 (Version 1)
Quarter: 2017Q3

REPORT INFORMATION
  Report Type: Spontaneous
  Country: TR (occurrence: TR)
  Receive Date: 20170727
  Receipt Date: 20170727
  Transmission Date: 20171127
  Serious: Yes (Hospitalization, Other)
  Sender: FDA-Public Use
  Company Number: TR-TEVA-790925ISR

PATIENT
  Age: 19 Year
  Sex: Female
  Weight: 45 kg

DRUGS (1)
  1. TETRADOX [Suspect]
     Active Substance: DOXYCYCLINE HYDROCHLORIDE
     Indication: SCAR
     Dosage: TETRADOX 100 MG CAPSULE
     Route: 048
     Dates: start: 20170609, end: 20170709

REACTIONS (7)
  - Throat irritation [Recovering/Resolving]
  - Dyspepsia [Recovering/Resolving]
  - Decreased appetite [Recovering/Resolving]
  - Oesophageal ulcer [Recovering/Resolving]
  - Oropharyngeal pain [Recovering/Resolving]
  - Weight decreased [Recovering/Resolving]
  - Abdominal pain upper [Recovering/Resolving]

NARRATIVE: CASE EVENT DATE: 20170706
